FAERS Safety Report 6452044-6 (Version None)
Quarter: 2009Q4

REPORT INFORMATION
  Report Type: 
  Country: None (occurrence: None)
  Receive Date: 20091123
  Receipt Date: 20091012
  Transmission Date: 20100525
  Serious: Yes (Other)
  Sender: FDA-Public Use
  Company Number: US-AMGEN-US368604

PATIENT
  Age: 16 Year
  Sex: Female
  Weight: 48.5 kg

DRUGS (2)
  1. ENBREL [Suspect]
     Indication: JUVENILE ARTHRITIS
     Route: 058
     Dates: end: 20090101
  2. NAPROSYN [Concomitant]
     Route: 048

REACTIONS (1)
  - AUTOANTIBODY POSITIVE [None]
